FAERS Safety Report 5602311-0 (Version None)
Quarter: 2008Q1

REPORT INFORMATION
  Report Type: 
  Country: None (occurrence: None)
  Receive Date: 20080125
  Receipt Date: 20071121
  Transmission Date: 20080703
  Serious: Yes (Other)
  Sender: FDA-Public Use
  Company Number: US-JNJFOC-20080105971

PATIENT
  Sex: Male
  Weight: 32.57 kg

DRUGS (5)
  1. CONCERTA [Suspect]
     Indication: ATTENTION DEFICIT/HYPERACTIVITY DISORDER
     Route: 048
  2. CARBATROL [Suspect]
     Route: 048
  3. CARBATROL [Suspect]
     Route: 048
  4. CARBATROL [Suspect]
     Indication: CONVULSION
     Route: 048
  5. GEODON [Suspect]
     Indication: BIPOLAR DISORDER
     Route: 048

REACTIONS (1)
  - CATARACT [None]
